FAERS Safety Report 4309771-6 (Version None)
Quarter: 2004Q1

REPORT INFORMATION
  Report Type: 
  Country: None (occurrence: None)
  Receive Date: 20040301
  Receipt Date: 20030422
  Transmission Date: 20041129
  Serious: Yes (Other)
  Sender: FDA-Public Use
  Company Number: US_030494209

PATIENT
  Age: 65 Year
  Sex: Male

DRUGS (5)
  1. PERMAX [Suspect]
     Indication: PARKINSON'S DISEASE
     Dosage: 1 MG/4 DAY
     Dates: start: 19990101, end: 20000401
  2. LASIX [Concomitant]
  3. SINEMET [Concomitant]
  4. MONOPRONT (ISOSORBIDE MONONITRATE) [Concomitant]
  5. COREG [Concomitant]

REACTIONS (2)
  - AORTIC VALVE INCOMPETENCE [None]
  - TRICUSPID VALVE INCOMPETENCE [None]
